FAERS Safety Report 4931900-1 (Version None)
Quarter: 2006Q1

REPORT INFORMATION
  Report Type: 
  Country: None (occurrence: None)
  Receive Date: 20060303
  Receipt Date: 20051020
  Transmission Date: 20060701
  Serious: Yes (Hospitalization)
  Sender: FDA-Public Use
  Company Number: US-MERCK-0510USA08445

PATIENT
  Age: 40 Year
  Sex: Female
  Weight: 66 kg

DRUGS (23)
  1. VIOXX [Suspect]
     Indication: ARTHRITIS
     Route: 048
     Dates: start: 20000606
  2. VIOXX [Suspect]
     Route: 048
     Dates: start: 19990901, end: 20000601
  3. VIOXX [Suspect]
     Indication: FIBROMYALGIA
     Route: 048
     Dates: start: 20000606
  4. VIOXX [Suspect]
     Route: 048
     Dates: start: 19990901, end: 20000601
  5. DARVOCET-N 50 [Concomitant]
     Indication: PAIN
     Route: 065
     Dates: start: 20050822
  6. DARVOCET-N 50 [Concomitant]
     Indication: ARTHRITIS
     Route: 065
     Dates: start: 20050822
  7. IMITREX [Concomitant]
     Indication: MIGRAINE
     Route: 065
  8. INDERAL [Concomitant]
     Indication: HYPERTENSION
     Route: 065
  9. INDERAL [Concomitant]
     Indication: CARDIAC DISORDER
     Route: 065
  10. KLOR-CON [Concomitant]
     Route: 065
  11. PRAVACHOL [Concomitant]
     Route: 065
  12. ACCUPRIL [Concomitant]
     Indication: HYPERTENSION
     Route: 065
  13. REGLAN [Concomitant]
     Indication: GASTROOESOPHAGEAL REFLUX DISEASE
     Route: 065
  14. VICODIN [Concomitant]
     Indication: PAIN
     Route: 065
     Dates: start: 20050513
  15. VICODIN [Concomitant]
     Indication: ARTHRITIS
     Route: 065
     Dates: start: 20050513
  16. ADALAT [Concomitant]
     Indication: HYPERTENSION
     Route: 065
  17. PRILOSEC [Concomitant]
     Indication: GASTROOESOPHAGEAL REFLUX DISEASE
     Route: 065
  18. COUMADIN [Concomitant]
     Route: 065
  19. COMPAZINE [Concomitant]
     Indication: NAUSEA
     Route: 065
  20. DIPHENHYDRAMINE HYDROCHLORIDE [Concomitant]
     Route: 065
  21. LIPITOR [Concomitant]
     Route: 065
  22. PREVACID [Concomitant]
     Route: 065
  23. AMOXICILLIN [Concomitant]
     Route: 065

REACTIONS (19)
  - ANGINA PECTORIS [None]
  - AORTIC DISSECTION [None]
  - ARTERIOSCLEROSIS [None]
  - ASTHMA [None]
  - CARDIAC FAILURE CONGESTIVE [None]
  - CHRONIC OBSTRUCTIVE PULMONARY DISEASE [None]
  - CORONARY ARTERY DISEASE [None]
  - DEPRESSION [None]
  - DIABETES MELLITUS NON-INSULIN-DEPENDENT [None]
  - HOT FLUSH [None]
  - HYPERLIPIDAEMIA [None]
  - MITRAL VALVE PROLAPSE [None]
  - MYALGIA [None]
  - MYOCARDIAL INFARCTION [None]
  - MYOCARDIAL ISCHAEMIA [None]
  - OEDEMA PERIPHERAL [None]
  - RENAL ARTERY STENOSIS [None]
  - SINUSITIS [None]
  - WEIGHT INCREASED [None]
